FAERS Safety Report 21529150 (Version 2)
Quarter: 2022Q4

REPORT INFORMATION
  Report Type: Report from Study
  Country: US (occurrence: US)
  Receive Date: 20221031
  Receipt Date: 20221101
  Transmission Date: 20230113
  Serious: No
  Sender: FDA-Public Use
  Company Number: US-ABBVIE-4170955

PATIENT
  Sex: Female

DRUGS (1)
  1. VENCLEXTA [Suspect]
     Active Substance: VENETOCLAX
     Indication: Refractory anaemia with ringed sideroblasts
     Dosage: TAKE 1 TABLET BY MOUTH DAILY. TAKE ON DAYS 1-14 OF EACH CYCLE. TAKE? WITH FOOD. SWALLOW WHOLE, DO...
     Route: 048

REACTIONS (2)
  - Off label use [Unknown]
  - Blood test abnormal [Unknown]
